FAERS Safety Report 9643389 (Version 1)
Quarter: 2013Q4

REPORT INFORMATION
  Report Type: Spontaneous
  Country: GB (occurrence: GB)
  Receive Date: 20131024
  Receipt Date: 20131024
  Transmission Date: 20140711
  Serious: Yes (Life-Threatening, Hospitalization, Other)
  Sender: FDA-Public Use
  Company Number: ALCN2013GB005256

PATIENT
  Sex: 0

DRUGS (5)
  1. AZOPT [Suspect]
     Dosage: UNK
     Route: 047
     Dates: start: 201212
  2. AMLODIPINE [Concomitant]
  3. ATENOLOL [Concomitant]
     Route: 048
  4. BENDROFLUMETHIAZIDE [Concomitant]
  5. TRAVATAN BAK FREE [Concomitant]

REACTIONS (1)
  - Hyponatraemia [Recovered/Resolved]
